FAERS Safety Report 5768205-5 (Version None)
Quarter: 2008Q2

REPORT INFORMATION
  Report Type: 
  Country: None (occurrence: None)
  Receive Date: 20080612
  Receipt Date: 20080604
  Transmission Date: 20081010
  Serious: Yes (Other)
  Sender: FDA-Public Use
  Company Number: ES-MERCK-0806ESP00010

PATIENT
  Age: 71 Year
  Sex: Female

DRUGS (2)
  1. ZOCOR [Suspect]
     Indication: HYPERCHOLESTEROLAEMIA
     Route: 048
  2. [THERAPY UNSPECIFIED] [Concomitant]
     Indication: OSTEOPOROSIS
     Route: 065

REACTIONS (1)
  - EOSINOPHILIC FASCIITIS [None]
